FAERS Safety Report 6868827-4 (Version None)
Quarter: 2010Q3

REPORT INFORMATION
  Report Type: 
  Country: None (occurrence: None)
  Receive Date: 20100722
  Receipt Date: 20080618
  Transmission Date: 20110219
  Serious: No
  Sender: FDA-Public Use
  Company Number: US-PFIZER INC-2008051666

PATIENT
  Sex: Female
  Weight: 52.7 kg

DRUGS (2)
  1. CHANTIX [Suspect]
     Dates: start: 20080606
  2. BENICAR HCT [Concomitant]
     Indication: BLOOD PRESSURE ABNORMAL

REACTIONS (1)
  - ABDOMINAL PAIN UPPER [None]
